FAERS Safety Report 18709608 (Version 1)
Quarter: 2021Q1

REPORT INFORMATION
  Report Type: Spontaneous
  Country: RU (occurrence: RU)
  Receive Date: 20210107
  Receipt Date: 20210107
  Transmission Date: 20210419
  Serious: Yes (Other)
  Sender: FDA-Public Use
  Company Number: RU-LUPIN PHARMACEUTICALS INC.-2020-11303

PATIENT
  Age: 4 Year
  Sex: Female

DRUGS (4)
  1. LEVETIRACETAM. [Suspect]
     Active Substance: LEVETIRACETAM
     Dosage: 500 MILLIGRAM, QD, 2.5 ML 2 TIMES / DAY IN THE MORNING AND EVENING
     Route: 065
     Dates: start: 2017, end: 2017
  2. DEPAKINE CHRONO [Suspect]
     Active Substance: VALPROATE SODIUM
     Indication: NEURONAL CEROID LIPOFUSCINOSIS
     Dosage: 300 MILLIGRAM, QD
     Route: 065
     Dates: start: 2016
  3. LEVETIRACETAM. [Suspect]
     Active Substance: LEVETIRACETAM
     Indication: NEURONAL CEROID LIPOFUSCINOSIS
     Dosage: 100 MILLIGRAM, QD
     Route: 065
     Dates: start: 2017, end: 2017
  4. TOPIRAMAT [Suspect]
     Active Substance: TOPIRAMATE
     Indication: NEURONAL CEROID LIPOFUSCINOSIS
     Dosage: UNK
     Route: 065
     Dates: end: 2017

REACTIONS (11)
  - Agitation [Unknown]
  - Head titubation [Unknown]
  - Hypotonia [Unknown]
  - Hyperreflexia [Unknown]
  - Ataxia [Unknown]
  - Tremor [Unknown]
  - Tearfulness [Unknown]
  - Seizure [Unknown]
  - Muscle twitching [Unknown]
  - Fall [Unknown]
  - Condition aggravated [Unknown]

NARRATIVE: CASE EVENT DATE: 2017
